FAERS Safety Report 8975322 (Version 1)
Quarter: 2012Q4

REPORT INFORMATION
  Report Type: 
  Country: NL (occurrence: NL)
  Receive Date: 20121219
  Receipt Date: 20121219
  Transmission Date: 20130627
  Serious: Yes (Other)
  Sender: FDA-Public Use
  Company Number: NL-009507513-1212NLD005866

PATIENT
  Age: 52 Year
  Sex: Male
  Weight: 90 kg

DRUGS (3)
  1. SIMVASTATIN [Suspect]
     Indication: BLOOD CHOLESTEROL INCREASED
     Dosage: UNK
     Route: 048
     Dates: start: 20120801, end: 20121201
  2. SIMVASTATIN [Suspect]
     Dosage: 10 mg, qd
     Route: 048
     Dates: start: 20090601, end: 2012
  3. LEVOTHYROXINE SODIUM [Concomitant]
     Dosage: 137.5 Microgram, qd
     Route: 048
     Dates: start: 20000101

REACTIONS (3)
  - Chromaturia [Recovered/Resolved with Sequelae]
  - Chills [Recovered/Resolved with Sequelae]
  - Myalgia [Recovered/Resolved with Sequelae]
